FAERS Safety Report 20081652 (Version 2)
Quarter: 2022Q1

REPORT INFORMATION
  Report Type: Spontaneous
  Country: JP (occurrence: JP)
  Receive Date: 20211117
  Receipt Date: 20220224
  Transmission Date: 20220423
  Serious: Yes (Other)
  Sender: FDA-Public Use
  Company Number: JP-Eisai-202108522_LEN-HCC_P_1

PATIENT
  Sex: Male
  Weight: 70 kg

DRUGS (2)
  1. LENVIMA [Suspect]
     Active Substance: LENVATINIB
     Indication: Hepatocellular carcinoma
     Route: 048
     Dates: start: 20201006, end: 20211029
  2. LENVIMA [Suspect]
     Active Substance: LENVATINIB
     Route: 048
     Dates: start: 20211112

REACTIONS (1)
  - Thrombotic cerebral infarction [Recovering/Resolving]

NARRATIVE: CASE EVENT DATE: 20211029
